FAERS Safety Report 17387808 (Version 1)
Quarter: 2020Q1

REPORT INFORMATION
  Report Type: Spontaneous
  Country: US (occurrence: US)
  Receive Date: 20200206
  Receipt Date: 20200206
  Transmission Date: 20200409
  Serious: No
  Sender: FDA-Public Use
  Company Number: US-RADIUS HEALTH INC.-2020US000185

PATIENT
  Sex: Female

DRUGS (1)
  1. TYMLOS [Suspect]
     Active Substance: ABALOPARATIDE
     Indication: OSTEOPOROSIS POSTMENOPAUSAL
     Dosage: UNK

REACTIONS (5)
  - Pain in jaw [Unknown]
  - Nausea [Unknown]
  - Insomnia [Unknown]
  - Discomfort [Unknown]
  - Headache [Unknown]

NARRATIVE: CASE EVENT DATE: 20200113
